FAERS Safety Report 9160367 (Version 2)
Quarter: 2013Q2

REPORT INFORMATION
  Report Type: Spontaneous
  Country: ES (occurrence: ES)
  Receive Date: 20130313
  Receipt Date: 20130423
  Transmission Date: 20140414
  Serious: Yes (Death)
  Sender: FDA-Public Use
  Company Number: ES-PFIZER INC-2013080175

PATIENT
  Age: 86 Year
  Sex: Male

DRUGS (10)
  1. LYRICA [Suspect]
     Indication: PROCTALGIA
     Dosage: 75 MG, 2X/DAY
     Route: 048
     Dates: start: 20120620, end: 20130103
  2. LYRICA [Suspect]
     Dosage: 75 MG, 1X/DAY
     Route: 048
     Dates: start: 20130104, end: 20130111
  3. OMEPRAZOLE [Concomitant]
     Dosage: 20 MG, 1X/DAY
     Route: 048
  4. LANIRAPID [Concomitant]
     Dosage: 0.1 MG, 1X/DAY
     Route: 048
  5. LARGACTIL [Concomitant]
     Indication: PROCTALGIA
     Dosage: 30 ML, 1X/DAY
     Route: 048
  6. PLUSVENT [Concomitant]
     Dosage: 25UG/125 UG; 2 DF 2X/DAY;
     Route: 055
  7. SINTROM [Concomitant]
     Route: 048
  8. SPIRIVA [Concomitant]
     Dosage: 18 UG, 1X/DAY
     Route: 055
  9. HYDROCHLOROTHIAZIDE, VALSARTAN [Concomitant]
     Dosage: 1 DF, 1X/DAY
     Route: 048
  10. XALATAN [Concomitant]
     Route: 047

REACTIONS (2)
  - Completed suicide [Fatal]
  - Off label use [Unknown]
